FAERS Safety Report 8441461-0 (Version None)
Quarter: 2012Q2

REPORT INFORMATION
  Report Type: 
  Country: None (occurrence: None)
  Receive Date: 20120615
  Receipt Date: 20120606
  Transmission Date: 20120825
  Serious: Yes (Hospitalization)
  Sender: FDA-Public Use
  Company Number: US-BAYER-2012-003037

PATIENT
  Age: 13 Year
  Sex: Female
  Weight: 127 kg

DRUGS (14)
  1. MORPHINE [Concomitant]
     Dosage: 4 MG, UNK
     Route: 042
     Dates: start: 20090216
  2. A/B OTIC [Concomitant]
     Dosage: 54-14MG/ML
     Route: 061
     Dates: start: 20081124
  3. ZOFRAN [Concomitant]
     Dosage: 4 MG, UNK
     Route: 042
     Dates: start: 20090216
  4. PERCOCET [Concomitant]
     Dosage: 5-325MG
     Route: 048
     Dates: start: 20090219
  5. AMOXICILLIN [Concomitant]
     Dosage: 875 MG, UNK
     Route: 048
     Dates: start: 20081119
  6. ZOLOFT [Concomitant]
     Dosage: 50 MG, UNK
     Route: 048
     Dates: start: 20090216
  7. PHENERGAN [Concomitant]
     Dosage: 25 MG, UNK
     Route: 048
     Dates: start: 20090219
  8. YASMIN [Suspect]
  9. NAPROXEN (ALEVE) [Concomitant]
     Dosage: 220 MG, UNK
     Route: 048
     Dates: start: 20090216
  10. AZITHROMYCIN [Concomitant]
     Dosage: UNK
     Route: 048
     Dates: start: 20081124
  11. GARDASIL [Concomitant]
     Dosage: UNK
     Dates: start: 20090115
  12. SODIUM CHLORIDE [Concomitant]
     Dosage: 1000 ML, UNK
     Route: 042
     Dates: start: 20090216
  13. DROSPIRENONE AND ETHINYL ESTRADIOL [Suspect]
     Indication: CONTRACEPTION
     Dates: start: 20060101, end: 20090101
  14. DROSPIRENONE AND ETHINYL ESTRADIOL [Suspect]
     Dosage: UNK
     Dates: start: 20100101

REACTIONS (7)
  - BILIARY DYSKINESIA [None]
  - GALLBLADDER INJURY [None]
  - EMOTIONAL DISTRESS [None]
  - ANXIETY [None]
  - PAIN [None]
  - INJURY [None]
  - GENERAL PHYSICAL HEALTH DETERIORATION [None]
